FAERS Safety Report 16260618 (Version 1)
Quarter: 2019Q2

REPORT INFORMATION
  Report Type: Spontaneous
  Country: SE (occurrence: SE)
  Receive Date: 20190501
  Receipt Date: 20190501
  Transmission Date: 20190711
  Serious: Yes (Hospitalization)
  Sender: FDA-Public Use
  Company Number: SE-TEVA-2019-SE-1043422

PATIENT
  Sex: Male

DRUGS (2)
  1. LOPERAMIDE [Suspect]
     Active Substance: LOPERAMIDE
     Route: 048
     Dates: start: 20160730, end: 20160730
  2. NATRIUMBIKARBONAT [Suspect]
     Active Substance: SODIUM BICARBONATE
     Route: 048
     Dates: start: 20160730, end: 20160730

REACTIONS (8)
  - Altered state of consciousness [Unknown]
  - Hyperkalaemia [Unknown]
  - Intentional self-injury [Unknown]
  - Abdominal pain [Unknown]
  - Intentional overdose [Unknown]
  - Drug abuse [Unknown]
  - Rhabdomyolysis [Unknown]
  - Agitation [Unknown]

NARRATIVE: CASE EVENT DATE: 20160730
